FAERS Safety Report 9254849 (Version 5)
Quarter: 2014Q2

REPORT INFORMATION
  Report Type: Report from Study
  Country: US (occurrence: US)
  Receive Date: 20130425
  Receipt Date: 20140414
  Transmission Date: 20141212
  Serious: Yes (Death, Hospitalization)
  Sender: FDA-Public Use
  Company Number: US-ACTELION-A-NJ2013-81250

PATIENT
  Age: 67 Year
  Sex: Female

DRUGS (5)
  1. TRACLEER [Suspect]
     Indication: PULMONARY ARTERIAL HYPERTENSION
     Dosage: 125 MG, BID
     Route: 048
     Dates: start: 2010
  2. TRACLEER [Suspect]
     Dosage: UNK
     Route: 048
     Dates: start: 20071031
  3. TRACLEER [Suspect]
     Dosage: 62.5 MG, BID
     Route: 048
     Dates: start: 2009, end: 2010
  4. REMODULIN [Concomitant]
  5. COUMADIN [Concomitant]

REACTIONS (4)
  - Death [Fatal]
  - Diarrhoea [Unknown]
  - Right ventricular failure [Recovering/Resolving]
  - Fluid retention [Recovering/Resolving]
